FAERS Safety Report 4842878-3 (Version None)
Quarter: 2005Q4

REPORT INFORMATION
  Report Type: 
  Country: None (occurrence: None)
  Receive Date: 20051129
  Receipt Date: 20051116
  Transmission Date: 20060501
  Serious: Yes (Other)
  Sender: FDA-Public Use
  Company Number: GXKR2005JP02018

PATIENT
  Age: 66 Year
  Sex: Female

DRUGS (1)
  1. RIMACTANE [Suspect]
     Indication: PERITONEAL TUBERCULOSIS
     Dosage: ORAL
     Route: 048

REACTIONS (2)
  - AUTOIMMUNE THYROIDITIS [None]
  - HYPOTHYROIDISM [None]
